FAERS Safety Report 5087937-8 (Version None)
Quarter: 2006Q3

REPORT INFORMATION
  Report Type: 
  Country: None (occurrence: None)
  Receive Date: 20060822
  Receipt Date: 20060822
  Transmission Date: 20061208
  Serious: Yes (Hospitalization)
  Sender: FDA-Public Use
  Company Number: None

PATIENT
  Age: 51 Year
  Sex: Male
  Weight: 120 kg

DRUGS (3)
  1. OXALIPLATIN [Suspect]
     Indication: OESOPHAGEAL CARCINOMA
     Dosage: 125 MG Q 7 DAYS IV
     Route: 042
     Dates: start: 20060531, end: 20060814
  2. CAPECITABINE [Suspect]
     Indication: OESOPHAGEAL CARCINOMA
     Dosage: 3600 MG DAYS 1-5 Q 7DAYS PO
     Route: 048
     Dates: start: 20060531, end: 20060814
  3. RADIATION THERAPY [Concomitant]

REACTIONS (5)
  - DYSPHAGIA [None]
  - NAUSEA [None]
  - PAIN [None]
  - PYREXIA [None]
  - VOMITING [None]
